FAERS Safety Report 14423542 (Version 3)
Quarter: 2018Q1

REPORT INFORMATION
  Report Type: Spontaneous
  Country: US (occurrence: US)
  Receive Date: 20180123
  Receipt Date: 20180313
  Transmission Date: 20180509
  Serious: No
  Sender: FDA-Public Use
  Company Number: US-PFIZER INC-2018028279

PATIENT
  Age: 6 Year
  Sex: Female

DRUGS (2)
  1. GENOTROPIN [Suspect]
     Active Substance: SOMATROPIN
     Indication: BODY HEIGHT BELOW NORMAL
  2. GENOTROPIN [Suspect]
     Active Substance: SOMATROPIN
     Indication: SILVER-RUSSELL SYNDROME
     Dosage: 0.6 MG, 6 DAY/ WEEK)
     Route: 058
     Dates: start: 201607

REACTIONS (2)
  - Drug hypersensitivity [Unknown]
  - Pruritus [Unknown]
